FAERS Safety Report 9705827 (Version 2)
Quarter: 2013Q4

REPORT INFORMATION
  Report Type: Spontaneous
  Country: US (occurrence: US)
  Receive Date: 20131122
  Receipt Date: 20131122
  Transmission Date: 20140711
  Serious: No
  Sender: FDA-Public Use
  Company Number: US-GILEAD-2008-0017756

PATIENT
  Age: 86 Year
  Sex: Male

DRUGS (9)
  1. LETAIRIS [Suspect]
     Indication: PULMONARY ARTERIAL HYPERTENSION
     Route: 048
     Dates: start: 20080717, end: 200812
  2. COREG [Concomitant]
  3. ZOCOR [Concomitant]
  4. DEMADEX [Concomitant]
  5. ASA LOW DOSE [Concomitant]
  6. REMERON [Concomitant]
  7. STOOL SOFTENER [Concomitant]
  8. K-DUR [Concomitant]
  9. MULTIVITAMIN [Concomitant]

REACTIONS (4)
  - Unevaluable event [None]
  - Paraesthesia [None]
  - Hypoaesthesia [None]
  - Constipation [None]
